FAERS Safety Report 11668621 (Version 10)
Quarter: 2015Q4

REPORT INFORMATION
  Report Type: Report from Study
  Country: TW (occurrence: TW)
  Receive Date: 20151027
  Receipt Date: 20151203
  Transmission Date: 20160304
  Serious: Yes (Death, Life-Threatening, Other)
  Sender: FDA-Public Use
  Company Number: TW-ABBVIE-15K-153-1482463-00

PATIENT
  Age: 53 Year
  Sex: Male
  Weight: 62.5 kg

DRUGS (8)
  1. PLAQUENIL [Concomitant]
     Active Substance: HYDROXYCHLOROQUINE SULFATE
     Indication: PRODUCT USED FOR UNKNOWN INDICATION
     Route: 048
     Dates: start: 20150129
  2. LEFLUNOMIDE. [Concomitant]
     Active Substance: LEFLUNOMIDE
     Indication: PRODUCT USED FOR UNKNOWN INDICATION
     Dates: start: 201103, end: 201204
  3. METHOTREXATE [Concomitant]
     Active Substance: METHOTREXATE
     Indication: PRODUCT USED FOR UNKNOWN INDICATION
     Route: 048
     Dates: start: 201103, end: 201509
  4. HUMIRA [Suspect]
     Active Substance: ADALIMUMAB
     Indication: PSORIATIC ARTHROPATHY
     Route: 058
     Dates: start: 20120821
  5. HUMIRA [Suspect]
     Active Substance: ADALIMUMAB
     Route: 058
     Dates: start: 20131231, end: 20150924
  6. CYCLOSPORIN A [Concomitant]
     Active Substance: CYCLOSPORINE
     Indication: PRODUCT USED FOR UNKNOWN INDICATION
     Dates: start: 201206, end: 201303
  7. HUMIRA [Suspect]
     Active Substance: ADALIMUMAB
     Route: 058
     Dates: end: 20131203
  8. SILIMIN [Concomitant]
     Indication: PRODUCT USED FOR UNKNOWN INDICATION
     Route: 048
     Dates: start: 20130910, end: 20140828

REACTIONS (19)
  - Multi-organ failure [Fatal]
  - Renal cyst [Unknown]
  - Blood alkaline phosphatase increased [Unknown]
  - Mycobacterium tuberculosis complex test positive [Unknown]
  - Viral test positive [Unknown]
  - Splenomegaly [Unknown]
  - Jaundice [Unknown]
  - Nausea [Unknown]
  - Vomiting [Unknown]
  - Mycobacterium tuberculosis complex test positive [Unknown]
  - Prothrombin time prolonged [Unknown]
  - Hepatic cancer stage III [Fatal]
  - Hepatic cirrhosis [Unknown]
  - Bile duct obstruction [Unknown]
  - Hepatitis B DNA increased [Unknown]
  - Chronic hepatitis [Unknown]
  - Alpha 1 foetoprotein increased [Unknown]
  - Tuberculosis [Unknown]
  - Blood albumin decreased [Unknown]

NARRATIVE: CASE EVENT DATE: 201209
